FAERS Safety Report 12329381 (Version 2)
Quarter: 2016Q2

REPORT INFORMATION
  Report Type: Spontaneous
  Country: US (occurrence: US)
  Receive Date: 20160503
  Receipt Date: 20160509
  Transmission Date: 20160815
  Serious: Yes (Hospitalization, Other)
  Sender: FDA-Public Use
  Company Number: US-MDT-ADR-2016-00791

PATIENT
  Sex: Female

DRUGS (5)
  1. DILAUDID [Suspect]
     Active Substance: HYDROMORPHONE HYDROCHLORIDE
     Route: 037
  2. UNSPECIFIED MEDICATIONS [Suspect]
     Active Substance: UNSPECIFIED INGREDIENT
     Route: 048
  3. BACLOFEN. [Suspect]
     Active Substance: BACLOFEN
     Route: 037
  4. CLONIDINE. [Suspect]
     Active Substance: CLONIDINE
     Route: 037
  5. FENTANYL. [Suspect]
     Active Substance: FENTANYL
     Route: 037

REACTIONS (4)
  - Disorientation [Unknown]
  - Swelling [Unknown]
  - Arthropod bite [Unknown]
  - Hypersensitivity [Unknown]
